FAERS Safety Report 7281137-9 (Version None)
Quarter: 2011Q1

REPORT INFORMATION
  Report Type: 
  Country: None (occurrence: None)
  Receive Date: 20110208
  Receipt Date: 20110131
  Transmission Date: 20110831
  Serious: Yes (Other)
  Sender: FDA-Public Use
  Company Number: CHPA2011CH02030

PATIENT

DRUGS (1)
  1. NICOTINELL GUM [Suspect]
     Dosage: UNK, UNK ^SINCE YEARS^
     Route: 065

REACTIONS (1)
  - DRUG ABUSE [None]
